FAERS Safety Report 23159142 (Version 1)
Quarter: 2023Q4

REPORT INFORMATION
  Report Type: Spontaneous
  Country: US (occurrence: None)
  Receive Date: 20231107
  Receipt Date: 20231107
  Transmission Date: 20240109
  Serious: Yes (Death)
  Sender: FDA-Public Use
  Company Number: None

PATIENT
  Age: 76 Year
  Sex: Female
  Weight: 60.66 kg

DRUGS (12)
  1. REVLIMID [Suspect]
     Active Substance: LENALIDOMIDE
     Indication: Plasma cell myeloma
     Dosage: FREQUENCY : DAILY;?
     Route: 048
     Dates: start: 20220829, end: 20231107
  2. XGEVA (denosumab) 120mg SUBQ q 28d x 12 Cycles v6.0 [Concomitant]
  3. ACYCLOVIR [Concomitant]
     Active Substance: ACYCLOVIR
  4. amlodipine 2.5 mg tablet [Concomitant]
  5. DEXAMETHASONE 4MG TABLETClick for context-specific patient-education r [Concomitant]
  6. Fish Oil 120 mg-180 mg-60 mg-1,200 mg capsule,delayed releaseClick for [Concomitant]
  7. levothyroxine 25 mcg tablet [Concomitant]
  8. Lexapro 10 mg tablet [Concomitant]
  9. ondansetron HCl 8 mg tablet [Concomitant]
  10. Lipitor 20 mg tablet [Concomitant]
  11. potassium chloride ER 10 mEq tablet,extended release [Concomitant]
  12. Vitamin D3 1,000 unit tablet [Concomitant]

REACTIONS (1)
  - Death [None]

NARRATIVE: CASE EVENT DATE: 20231107
